FAERS Safety Report 23977586 (Version 1)
Quarter: 2024Q2

REPORT INFORMATION
  Report Type: Report from Study
  Country: US (occurrence: None)
  Receive Date: 20240614
  Receipt Date: 20240614
  Transmission Date: 20240715
  Serious: Yes (Hospitalization)
  Sender: FDA-Public Use
  Company Number: 2024A133225

PATIENT
  Age: 959 Month
  Sex: Female

DRUGS (1)
  1. CALQUENCE [Suspect]
     Active Substance: ACALABRUTINIB
     Indication: Chronic lymphocytic leukaemia
     Route: 048
     Dates: start: 202211

REACTIONS (10)
  - Illness [Unknown]
  - Hallucination [Unknown]
  - Dehydration [Unknown]
  - Arthropod bite [Unknown]
  - Nodule [Unknown]
  - Pain [Unknown]
  - Pruritus [Unknown]
  - Exercise tolerance decreased [Unknown]
  - Drug hypersensitivity [Unknown]
  - Product dose omission issue [Unknown]

NARRATIVE: CASE EVENT DATE: 20230801
